FAERS Safety Report 5755050-X (Version None)
Quarter: 2008Q2

REPORT INFORMATION
  Report Type: 
  Country: None (occurrence: None)
  Receive Date: 20080602
  Receipt Date: 20080220
  Transmission Date: 20081010
  Serious: No
  Sender: FDA-Public Use
  Company Number: A0710806A

PATIENT
  Age: 38 Year
  Sex: Female

DRUGS (3)
  1. AUGMENTIN '125' [Suspect]
     Indication: SINUSITIS
     Dosage: 2000MG TWICE PER DAY
     Route: 048
     Dates: start: 20080213, end: 20080217
  2. MUCINEX [Concomitant]
  3. YASMIN [Concomitant]

REACTIONS (6)
  - ANXIETY [None]
  - CRYING [None]
  - DEPRESSION [None]
  - FEAR [None]
  - FEELING ABNORMAL [None]
  - PANIC REACTION [None]
